FAERS Safety Report 24792741 (Version 1)
Quarter: 2024Q4

REPORT INFORMATION
  Report Type: Spontaneous
  Country: US (occurrence: US)
  Receive Date: 20241231
  Receipt Date: 20241231
  Transmission Date: 20250114
  Serious: Yes (Other)
  Sender: UPSHER SMITH LABORATORIES
  Company Number: US-UPSHER-SMITH LABORATORIES, LLC-20241200279

PATIENT
  Sex: Male

DRUGS (1)
  1. HALOPERIDOL [Suspect]
     Active Substance: HALOPERIDOL
     Indication: Product used for unknown indication
     Dosage: 5 MG, QD
     Route: 065

REACTIONS (7)
  - Brain injury [Unknown]
  - Gait inability [Unknown]
  - Bedridden [Unknown]
  - Incoherent [Unknown]
  - Hypersomnia [Unknown]
  - Impaired work ability [Unknown]
  - Illness [Unknown]
